FAERS Safety Report 11106576 (Version 1)
Quarter: 2015Q2

REPORT INFORMATION
  Report Type: Other
  Country: FR (occurrence: FR)
  Receive Date: 20150512
  Receipt Date: 20150512
  Transmission Date: 20150821
  Serious: Yes (Other)
  Sender: FDA-Public Use
  Company Number: FR-ENDO PHARMACEUTICALS INC-2015-000799

PATIENT
  Age: 67 Year
  Sex: Female

DRUGS (2)
  1. SOTALOL HYDROCHLORIDE TABLETS [Suspect]
     Active Substance: SOTALOL HYDROCHLORIDE
     Route: 065
     Dates: start: 201401, end: 2014
  2. SOTALOL HYDROCHLORIDE TABLETS [Suspect]
     Active Substance: SOTALOL HYDROCHLORIDE
     Route: 065
     Dates: start: 2007, end: 201401

REACTIONS (1)
  - Organising pneumonia [Recovering/Resolving]

NARRATIVE: CASE EVENT DATE: 201406
